FAERS Safety Report 21297018 (Version 1)
Quarter: 2022Q3

REPORT INFORMATION
  Report Type: Spontaneous
  Country: FR (occurrence: FR)
  Receive Date: 20220906
  Receipt Date: 20220906
  Transmission Date: 20221027
  Serious: Yes (Hospitalization)
  Sender: FDA-Public Use
  Company Number: None

PATIENT
  Age: 69 Year
  Sex: Male
  Weight: 92.5 kg

DRUGS (22)
  1. RAMIPRIL [Suspect]
     Active Substance: RAMIPRIL
     Indication: Hypertension
     Dosage: UNIT DOSE : 1.25 MG, FREQUENCY TIME : 1 DAYS, THERAPY DURATION : 5 DAYS
     Route: 065
     Dates: start: 20220721, end: 20220726
  2. FUROSEMIDE [Suspect]
     Active Substance: FUROSEMIDE
     Indication: Fluid retention
     Dosage: THERAPY START DATE : ASKED BUT UNKNOWN, UNIT DOSE : 40 MG, FREQUENCY TIME : 1 DAYS
     Route: 065
     Dates: end: 20220725
  3. SPIRONOLACTONE [Suspect]
     Active Substance: SPIRONOLACTONE
     Indication: Fluid retention
     Dosage: THERAPY START DATE :  ASKED BUT UNKNOWN, UNIT DOSE : 50 MG,FREQUENCY TIME : 1 DAYS
     Route: 065
     Dates: end: 20220725
  4. BISOPROLOL FUMARATE [Suspect]
     Active Substance: BISOPROLOL FUMARATE
     Indication: Hypertension
     Dosage: UNIT DOSE :2.5 MG, THERAPY END DATE : NOT ASKED, FREQUENCY TIME : 1 DAYS
     Route: 065
     Dates: start: 20220721
  5. ATORVASTATIN [Concomitant]
     Active Substance: ATORVASTATIN
     Indication: Product used for unknown indication
     Dosage: THERAPY START DATE :  ASKED BUT UNKNOWN,UNIT DOSE : 40 MG, FREQUENCY TIME : 1 DAYS
  6. ACETAMINOPHEN [Concomitant]
     Active Substance: ACETAMINOPHEN
     Indication: Product used for unknown indication
     Dosage: THERAPY START DATE :  ASKED BUT UNKNOWN, UNIT DOSE : 1 DOSAGE FORMS,FREQUENCY TIME : 1 AS REQUIRED
  7. LEVETIRACETAM [Concomitant]
     Active Substance: LEVETIRACETAM
     Indication: Product used for unknown indication
     Dosage: THERAPY START DATE :  ASKED BUT UNKNOWN, UNIT DOSE : 750 MG, FREQUENCY TIME : 1 DAYS
  8. FOLIC ACID [Concomitant]
     Active Substance: FOLIC ACID
     Indication: Product used for unknown indication
     Dosage: THERAPY START DATE :  ASKED BUT UNKNOWN, UNIT DOSE : 5 MG, FREQUENCY TIME : 1 WEEKS
  9. SERETIDE [Concomitant]
     Active Substance: FLUTICASONE PROPIONATE\SALMETEROL XINAFOATE
     Indication: Product used for unknown indication
     Dosage: STRENGTH: 500/50 MICROGRAMS/DOSE, POWDER FOR INHALATION IN A SINGLE-DOSE CONTAINER, THERAPY START DA
  10. NOVORAPID [Concomitant]
     Active Substance: INSULIN ASPART
     Indication: Product used for unknown indication
     Dosage: ACCORDING TO PROTOCOL, THERAPY START DATE :  ASKED BUT UNKNOWN
  11. TOUJEO [Concomitant]
     Active Substance: INSULIN GLARGINE
     Indication: Product used for unknown indication
     Dosage: ((BACTERIE/ESCHERICHIA COLI)), THERAPY START DATE :  ASKED BUT UNKNOWN, UNIT DOSE : 32 IU, FREQUENC
  12. AMIODARONE [Concomitant]
     Active Substance: AMIODARONE
     Indication: Product used for unknown indication
     Dosage: THERAPY START DATE :  ASKED BUT UNKNOWN, UNIT DOSE : 200 MG, FREQUENCY TIME : 1 DAYS
  13. KARDEGIC [Concomitant]
     Active Substance: ASPIRIN DL-LYSINE
     Indication: Product used for unknown indication
     Dosage: UNIT DOSE AND UNIT STRENGTH : 75 MG, THERAPY START DATE :  ASKED BUT UNKNOWN, FREQUENCY TIME : 1 DAY
  14. SPIRIVA [Concomitant]
     Active Substance: TIOTROPIUM BROMIDE MONOHYDRATE
     Indication: Product used for unknown indication
     Dosage: THERAPY START DATE :  ASKED BUT UNKNOWN, UNIT DOSE : 1 DOSAGE FORMS, FREQUENCY TIME : 1 DAYS
  15. POLYETHYLENE GLYCOLS [Concomitant]
     Active Substance: POLYETHYLENE GLYCOLS
     Indication: Product used for unknown indication
     Dosage: THERAPY START DATE  AND  THERAPY END DATE : ASKED BUT UNKNOWN, UNIT DOSE : 4 DOSAGE FORMS, FREQUENCY
  16. APIXABAN [Concomitant]
     Active Substance: APIXABAN
     Indication: Product used for unknown indication
     Dosage: THERAPY START DATE :  ASKED BUT UNKNOWN, UNIT DOSE : 10 MG, FREQUENCY TIME : 1 DAYS
  17. EDUCTYL ADULTS [Concomitant]
     Indication: Product used for unknown indication
     Dosage: THERAPY START DATE :  ASKED BUT UNKNOWN, UNIT DOSE : 1 DOSAGE FORMS, FREQUENCY TIME : 1 AS REQUIRED
  18. ALBUTEROL [Concomitant]
     Active Substance: ALBUTEROL
     Indication: Product used for unknown indication
     Dosage: THERAPY START DATE :  ASKED BUT UNKNOWN, UNIT DOSE : 1 DOSAGE FORMS, FREQUENCY TIME : 1 AS REQUIRED
  19. GAVISCON [Concomitant]
     Active Substance: ALUMINUM HYDROXIDE\MAGNESIUM CARBONATE
     Indication: Product used for unknown indication
     Dosage: THERAPY START DATE :  ASKED BUT UNKNOWN, UNIT DOSE : 6 DOSAGE FORMS,  FREQUENCY TIME : 1 DAYS
  20. METHOTREXATE [Concomitant]
     Active Substance: METHOTREXATE
     Indication: Product used for unknown indication
     Dosage: THERAPY START DATE :  ASKED BUT UNKNOWN, UNIT DOSE : 17.5 MG, FREQUENCY TIME : 1 WEEKS
  21. PREDNISONE [Concomitant]
     Active Substance: PREDNISONE
     Indication: Product used for unknown indication
     Dosage: THERAPY START DATE :  ASKED BUT UNKNOWN, UNIT DOSE : 6 MG, FREQUENCY TIME : 1 DAYS
  22. LANSOPRAZOLE [Concomitant]
     Active Substance: LANSOPRAZOLE
     Indication: Product used for unknown indication
     Dosage: THERAPY START DATE :  ASKED BUT UNKNOWN, UNIT DOSE : 30 MG, FREQUENCY TIME : 1 DAYS

REACTIONS (1)
  - Orthostatic hypotension [Recovering/Resolving]

NARRATIVE: CASE EVENT DATE: 20220723
